FAERS Safety Report 8328259-9 (Version None)
Quarter: 2012Q2

REPORT INFORMATION
  Report Type: 
  Country: None (occurrence: None)
  Receive Date: 20120502
  Receipt Date: 20120424
  Transmission Date: 20120825
  Serious: Yes (Hospitalization, Other)
  Sender: FDA-Public Use
  Company Number: US-ASTELLAS-2012US003325

PATIENT
  Sex: Female
  Weight: 99 kg

DRUGS (1)
  1. PROGRAF [Suspect]
     Indication: PRODUCT USED FOR UNKNOWN INDICATION
     Dosage: 1.5 MG, UID/QD
     Route: 048

REACTIONS (48)
  - CONVULSION [None]
  - ACUTE MYELOID LEUKAEMIA [None]
  - OEDEMA PERIPHERAL [None]
  - COUGH [None]
  - CHILLS [None]
  - APPETITE DISORDER [None]
  - FIBROMYALGIA [None]
  - PERSONALITY DISORDER [None]
  - VAGINAL HAEMORRHAGE [None]
  - INFECTION [None]
  - DYSURIA [None]
  - MALAISE [None]
  - BLOOD PRODUCT TRANSFUSION DEPENDENT [None]
  - RIGHT VENTRICULAR FAILURE [None]
  - PYREXIA [None]
  - BK VIRUS INFECTION [None]
  - TREATMENT NONCOMPLIANCE [None]
  - IMMOBILE [None]
  - HAEMATOMA [None]
  - HEADACHE [None]
  - BACTERAEMIA [None]
  - TACHYPNOEA [None]
  - DECREASED APPETITE [None]
  - BACK PAIN [None]
  - TRANSAMINASES INCREASED [None]
  - EPISTAXIS [None]
  - TACHYCARDIA [None]
  - PRURITUS [None]
  - HYPERTENSION [None]
  - PANCYTOPENIA [None]
  - AFFECTIVE DISORDER [None]
  - ELECTROLYTE IMBALANCE [None]
  - ABDOMINAL PAIN [None]
  - DIARRHOEA [None]
  - RENAL FAILURE ACUTE [None]
  - MALNUTRITION [None]
  - SINUSITIS FUNGAL [None]
  - NEUTROPENIA [None]
  - FATIGUE [None]
  - RASH [None]
  - DYSPNOEA [None]
  - ABORTION INDUCED [None]
  - MATERNAL EXPOSURE DURING PREGNANCY [None]
  - CONTUSION [None]
  - NAUSEA [None]
  - VOMITING [None]
  - ANXIETY [None]
  - DIZZINESS [None]
